FAERS Safety Report 20667907 (Version 2)
Quarter: 2022Q2

REPORT INFORMATION
  Report Type: Spontaneous
  Country: US (occurrence: US)
  Receive Date: 20220404
  Receipt Date: 20220420
  Transmission Date: 20220721
  Serious: Yes (Other)
  Sender: FDA-Public Use
  Company Number: US-JNJFOC-20220358904

PATIENT

DRUGS (1)
  1. TREMFYA [Suspect]
     Active Substance: GUSELKUMAB
     Indication: Product used for unknown indication
     Dosage: 100 MG/ML
     Route: 065

REACTIONS (3)
  - Psoriatic arthropathy [Unknown]
  - Skin lesion [Unknown]
  - Drug ineffective [Unknown]
